FAERS Safety Report 4319007-8 (Version None)
Quarter: 2004Q1

REPORT INFORMATION
  Report Type: 
  Country: None (occurrence: None)
  Receive Date: 20040315
  Receipt Date: 20040308
  Transmission Date: 20041129
  Serious: Yes (Hospitalization)
  Sender: FDA-Public Use
  Company Number: 200410745GDS

PATIENT
  Age: 87 Year
  Sex: Female

DRUGS (3)
  1. ADIRO (ACETYLSALICYLIC ACID) [Suspect]
     Dosage: 100 MG, QD, ORAL
     Route: 048
     Dates: end: 20030731
  2. CAPOTEN [Suspect]
     Dosage: 25 MG, TOTAL DAILY, ORAL
     Route: 048
     Dates: end: 20030731
  3. FUROSEMIDE [Suspect]
     Dosage: 40 MG, TOTAL DAILY, ORAL
     Route: 048
     Dates: end: 20030710

REACTIONS (1)
  - RENAL FAILURE ACUTE [None]
